FAERS Safety Report 4285040-8 (Version None)
Quarter: 2004Q1

REPORT INFORMATION
  Report Type: 
  Country: None (occurrence: None)
  Receive Date: 20040204
  Receipt Date: 20031030
  Transmission Date: 20041129
  Serious: Yes (Disabling)
  Sender: FDA-Public Use
  Company Number: WAES 0310ZAF00031

PATIENT
  Age: 76 Year
  Sex: Male
  Weight: 72 kg

DRUGS (7)
  1. ALLOPURINOL [Concomitant]
     Indication: CALCULUS URINARY
     Route: 048
     Dates: start: 19900101
  2. ASPIRIN CALCIUM [Concomitant]
     Indication: PROPHYLAXIS
     Route: 048
     Dates: start: 19900101
  3. ASPIRIN CALCIUM [Concomitant]
     Route: 048
     Dates: start: 19900101
  4. BISOPROLOL FUMARATE [Concomitant]
     Indication: BLOOD PRESSURE
     Route: 048
     Dates: start: 19900101
  5. BISOPROLOL FUMARATE [Concomitant]
     Route: 048
     Dates: start: 19900101
  6. MAGNESIUM CHLORIDE [Concomitant]
  7. VIOXX [Suspect]
     Route: 048
     Dates: start: 20020901, end: 20030901

REACTIONS (4)
  - DYSPNOEA [None]
  - OEDEMA PERIPHERAL [None]
  - PULMONARY CONGESTION [None]
  - WHEEZING [None]
